FAERS Safety Report 13271761 (Version 2)
Quarter: 2017Q1

REPORT INFORMATION
  Report Type: Spontaneous
  Country: FR (occurrence: FR)
  Receive Date: 20170227
  Receipt Date: 20170307
  Transmission Date: 20170428
  Serious: Yes (Death, Hospitalization)
  Sender: FDA-Public Use
  Company Number: FR-ACCORD-048516

PATIENT
  Age: 73 Year
  Sex: Female

DRUGS (15)
  1. LEVOTHYROX [Concomitant]
     Active Substance: LEVOTHYROXINE
  2. TRAMADOL. [Concomitant]
     Active Substance: TRAMADOL
     Dates: start: 20161221
  3. KARDEGIC [Concomitant]
     Active Substance: ASPIRIN LYSINE
  4. INEXIUM [Concomitant]
     Active Substance: ESOMEPRAZOLE
  5. SOLU-MEDROL [Concomitant]
     Active Substance: METHYLPREDNISOLONE SODIUM SUCCINATE
     Dates: start: 20170126
  6. DOCETAXEL ACCORD [Suspect]
     Active Substance: DOCETAXEL
     Indication: BREAST CANCER
     Dosage: STRENGTH: 160 MG/8 ML
     Route: 042
     Dates: start: 20170126
  7. ENDOXAN [Suspect]
     Active Substance: CYCLOPHOSPHAMIDE
     Indication: BREAST CANCER
     Route: 042
     Dates: start: 20170126
  8. TEMERIT [Concomitant]
     Active Substance: NEBIVOLOL
  9. TRIATEC [Concomitant]
     Active Substance: RAMIPRIL
  10. FLUDEX [Concomitant]
     Active Substance: INDAPAMIDE
  11. LESCOL [Concomitant]
     Active Substance: FLUVASTATIN SODIUM
     Dosage: 20 MG, ONE TABLET DAILY
  12. ZOPHREN [Concomitant]
     Active Substance: ONDANSETRON
     Dates: start: 20170126
  13. EZETROL [Concomitant]
     Active Substance: EZETIMIBE
     Dosage: 10 MG ONCE EVERY TWO DAYS
  14. STILNOX [Concomitant]
     Active Substance: ZOLPIDEM TARTRATE
  15. ZARZIO [Concomitant]
     Active Substance: FILGRASTIM

REACTIONS (3)
  - Colitis ischaemic [Fatal]
  - Diarrhoea [Not Recovered/Not Resolved]
  - Agranulocytosis [Fatal]

NARRATIVE: CASE EVENT DATE: 2017
